FAERS Safety Report 5359194-6 (Version None)
Quarter: 2007Q2

REPORT INFORMATION
  Report Type: 
  Country: None (occurrence: None)
  Receive Date: 20070615
  Receipt Date: 20070525
  Transmission Date: 20071010
  Serious: Yes (Other)
  Sender: FDA-Public Use
  Company Number: US-JNJFOC-20070506342

PATIENT
  Age: 32 Year
  Sex: Female

DRUGS (1)
  1. TRINESSA [Suspect]
     Indication: CONTRACEPTION
     Route: 048

REACTIONS (1)
  - KERATOPATHY [None]
